FAERS Safety Report 7001529-2 (Version None)
Quarter: 2010Q3

REPORT INFORMATION
  Report Type: 
  Country: None (occurrence: None)
  Receive Date: 20100920
  Receipt Date: 20100910
  Transmission Date: 20110219
  Serious: Yes (Death, Hospitalization, Other)
  Sender: FDA-Public Use
  Company Number: CA-AMGEN-QUU369944

PATIENT
  Age: 8 Month
  Sex: Male

DRUGS (16)
  1. ARANESP [Suspect]
     Indication: RENAL FAILURE CHRONIC
     Route: 058
     Dates: start: 20090406, end: 20090504
  2. CELLCEPT [Suspect]
     Route: 048
  3. CALCITRIOL [Suspect]
  4. TACROLIMUS [Concomitant]
     Route: 048
  5. UNSPECIFIED MEDICATION [Concomitant]
     Dates: start: 20090502
  6. EDECRIN [Concomitant]
     Route: 042
  7. METOLAZONE [Concomitant]
     Route: 048
  8. SODIUM CHLORIDE [Concomitant]
  9. CLOBAZAM [Concomitant]
  10. KEPPRA [Concomitant]
  11. TOPIRAMATE [Concomitant]
  12. DOMPERIDONE [Concomitant]
     Route: 048
  13. OMEPRAZOLE [Concomitant]
  14. ENALAPRIL [Concomitant]
     Route: 048
  15. FUROSEMIDE [Concomitant]
  16. ALDACTAZIDE [Concomitant]

REACTIONS (18)
  - APLASIA PURE RED CELL [None]
  - ASPIRATION [None]
  - CONTINUOUS POSITIVE AIRWAY PRESSURE [None]
  - DEVELOPMENTAL DELAY [None]
  - DEVICE RELATED INFECTION [None]
  - ENTEROCOCCAL INFECTION [None]
  - NO THERAPEUTIC RESPONSE [None]
  - OXYGEN SUPPLEMENTATION [None]
  - PACKED RED BLOOD CELL TRANSFUSION [None]
  - PYREXIA [None]
  - RESPIRATORY DISTRESS [None]
  - SEPSIS [None]
  - STAPHYLOCOCCAL INFECTION [None]
  - STAPHYLOCOCCUS TEST POSITIVE [None]
  - THROMBOSIS [None]
  - TRANSPLANT FAILURE [None]
  - TRANSPLANT REJECTION [None]
  - WHEEZING [None]
